FAERS Safety Report 16840001 (Version 1)
Quarter: 2019Q4

REPORT INFORMATION
  Report Type: Spontaneous
  Country: US (occurrence: US)
  Receive Date: 20190920
  Receipt Date: 20190920
  Transmission Date: 20200122
  Serious: Yes (Hospitalization)
  Sender: FDA-Public Use
  Company Number: None

PATIENT
  Age: 56 Year
  Sex: Female
  Weight: 71 kg

DRUGS (1)
  1. VIVITROL [Suspect]
     Active Substance: NALTREXONE
     Indication: ALCOHOLISM
     Route: 030
     Dates: start: 20190913

REACTIONS (9)
  - Pallor [None]
  - Gait inability [None]
  - Dizziness [None]
  - Therapy cessation [None]
  - Nausea [None]
  - Eosinophilic pneumonia [None]
  - Ill-defined disorder [None]
  - Neurological symptom [None]
  - Cold sweat [None]

NARRATIVE: CASE EVENT DATE: 20190917
